FAERS Safety Report 8446231-5 (Version None)
Quarter: 2012Q2

REPORT INFORMATION
  Report Type: 
  Country: None (occurrence: None)
  Receive Date: 20120618
  Receipt Date: 20120605
  Transmission Date: 20120825
  Serious: No
  Sender: FDA-Public Use
  Company Number: US-ASTRAZENECA-2011SE40090

PATIENT
  Age: 68 Year
  Sex: Male
  Weight: 85.3 kg

DRUGS (12)
  1. SEROQUEL [Suspect]
     Indication: BIPOLAR DISORDER
     Route: 048
     Dates: start: 20080108
  2. NORVASC [Concomitant]
     Dates: start: 20080108
  3. SYMBICORT [Suspect]
     Route: 055
     Dates: start: 20080108
  4. DILAUDID [Concomitant]
     Route: 048
  5. SEROQUEL [Suspect]
     Route: 048
  6. PROAIR HFA [Concomitant]
  7. PREDNISONE [Concomitant]
  8. SEROQUEL [Suspect]
     Route: 048
  9. ALBUTEROL [Concomitant]
  10. SEROQUEL [Suspect]
     Dosage: GENERIC
     Route: 048
  11. ATENOLOL [Concomitant]
     Route: 048
     Dates: start: 20080108
  12. ZOCOR [Concomitant]
     Dates: start: 20080108

REACTIONS (12)
  - RESTLESSNESS [None]
  - NAUSEA [None]
  - DYSPNOEA [None]
  - DRUG DOSE OMISSION [None]
  - INSOMNIA [None]
  - RESTLESS LEGS SYNDROME [None]
  - WRONG TECHNIQUE IN DRUG USAGE PROCESS [None]
  - DRUG INEFFECTIVE [None]
  - MENTAL IMPAIRMENT [None]
  - ORTHOPNOEA [None]
  - ANXIETY [None]
  - DRUG WITHDRAWAL SYNDROME [None]
